FAERS Safety Report 10276300 (Version 1)
Quarter: 2014Q3

REPORT INFORMATION
  Report Type: Spontaneous
  Country: PH (occurrence: PH)
  Receive Date: 20140703
  Receipt Date: 20140703
  Transmission Date: 20150326
  Serious: Yes (Hospitalization, Other)
  Sender: FDA-Public Use
  Company Number: PH-BAYER-2014-096163

PATIENT
  Age: 12 Year
  Sex: Male

DRUGS (1)
  1. PRAZIQUANTEL [Suspect]
     Active Substance: PRAZIQUANTEL
     Indication: SCHISTOSOMIASIS
     Dosage: SPLIT DOSE, 60 MG/KG, OF PRAZIQUANTEL (PZQ) ON DAY 1 AND DAY 14

REACTIONS (13)
  - Ascites [Recovered/Resolved]
  - Varices oesophageal [Recovered/Resolved]
  - Splenomegaly [Recovered/Resolved]
  - Thrombocytopenia [Recovered/Resolved]
  - Drug ineffective [None]
  - Portal hypertension [Recovered/Resolved]
  - Portal fibrosis [Recovered/Resolved]
  - Portal vein thrombosis [Recovered/Resolved]
  - General physical health deterioration [None]
  - Portal vein cavernous transformation [Recovered/Resolved]
  - Hepatomegaly [Recovered/Resolved]
  - Pancytopenia [Recovered/Resolved]
  - Anaemia [Recovered/Resolved]
